FAERS Safety Report 21523882 (Version 1)
Quarter: 2022Q4

REPORT INFORMATION
  Report Type: Spontaneous
  Country: DE (occurrence: DE)
  Receive Date: 20221029
  Receipt Date: 20221029
  Transmission Date: 20230113
  Serious: Yes (Other)
  Sender: FDA-Public Use
  Company Number: DE-TEVA-2022-DE-2080372

PATIENT
  Age: 38 Year
  Sex: Female

DRUGS (4)
  1. QUETIAPINE [Suspect]
     Active Substance: QUETIAPINE
     Indication: Product used for unknown indication
     Dosage: 150 MILLIGRAM DAILY; FORM STRENGTH 150 MG, 1-3 MONTH OF PREGNANCY
     Route: 048
     Dates: start: 2019
  2. QUETIAPINE [Suspect]
     Active Substance: QUETIAPINE
     Dosage: 100 MILLIGRAM DAILY; FORM STRENGTH: 100MG
     Route: 048
     Dates: start: 2022
  3. QUETIAPINE [Suspect]
     Active Substance: QUETIAPINE
     Dosage: 50 MILLIGRAM DAILY; FORM STRENGTH: 50 MG, 6-9 MONTH OF PREGNANCY
     Route: 048
  4. QUETIAPINE [Suspect]
     Active Substance: QUETIAPINE
     Dosage: 100/50, 1 DAY 100, 1 DAY 50, TABLET, 3-6 MONTH OF PREGNANCY
     Route: 048

REACTIONS (4)
  - Vacuum extractor delivery [Unknown]
  - Maternal exposure during pregnancy [Unknown]
  - Normal newborn [Unknown]
  - Maternal exposure during breast feeding [Unknown]

NARRATIVE: CASE EVENT DATE: 20210920
